FAERS Safety Report 7574106-2 (Version None)
Quarter: 2011Q2

REPORT INFORMATION
  Report Type: 
  Country: None (occurrence: None)
  Receive Date: 20110627
  Receipt Date: 20110620
  Transmission Date: 20111010
  Serious: Yes (Death)
  Sender: FDA-Public Use
  Company Number: US-GILEAD-2011-0040140

PATIENT
  Sex: Female

DRUGS (14)
  1. PERCOCET [Concomitant]
  2. LETAIRIS [Suspect]
     Indication: PULMONARY HYPERTENSION
     Route: 048
     Dates: start: 20110519, end: 20110602
  3. LETAIRIS [Suspect]
     Indication: MITRAL VALVE DISEASE
  4. SPIRONOLACTONE [Concomitant]
  5. LASIX [Concomitant]
  6. WARFARIN SODIUM [Concomitant]
  7. ADVAIR DISKUS 100/50 [Concomitant]
  8. LETAIRIS [Suspect]
     Indication: DRUG ABUSE
  9. REVATIO [Concomitant]
     Indication: PULMONARY HYPERTENSION
  10. DIGOXIN [Concomitant]
  11. CITALOPRAM HYDROBROMIDE [Concomitant]
  12. ALBUTEROL SULFATE AUTOHALER [Concomitant]
  13. TRAZODONE HCL [Concomitant]
  14. ZOLOFT [Concomitant]

REACTIONS (3)
  - PULMONARY HYPERTENSION [None]
  - CARDIAC VALVE DISEASE [None]
  - LUNG DISORDER [None]
